FAERS Safety Report 7568907-4 (Version None)
Quarter: 2011Q2

REPORT INFORMATION
  Report Type: 
  Country: None (occurrence: None)
  Receive Date: 20110623
  Receipt Date: 20110615
  Transmission Date: 20111010
  Serious: Yes (Hospitalization, Other)
  Sender: FDA-Public Use
  Company Number: US-MPIJNJ-2011-01054

PATIENT
  Sex: Male
  Weight: 104.8 kg

DRUGS (2)
  1. VELCADE [Suspect]
     Dosage: 1.3 MG/M2, CYCLIC
     Route: 040
     Dates: start: 20110228, end: 20110228
  2. FLAVOPIRIDOL [Suspect]
     Dosage: 75 MG/M2, CYCLIC
     Route: 040
     Dates: start: 20110228, end: 20110228

REACTIONS (6)
  - DERMATITIS BULLOUS [None]
  - STOMATITIS [None]
  - MUCOSAL INFECTION [None]
  - PHARYNGEAL INFLAMMATION [None]
  - CD4 LYMPHOCYTES DECREASED [None]
  - OESOPHAGITIS [None]
